FAERS Safety Report 5123260-0 (Version None)
Quarter: 2006Q4

REPORT INFORMATION
  Report Type: 
  Country: None (occurrence: None)
  Receive Date: 20061009
  Receipt Date: 20061006
  Transmission Date: 20070319
  Serious: Yes (Other)
  Sender: FDA-Public Use
  Company Number: US-GLAXOSMITHKLINE-A0622751A

PATIENT
  Age: 67 Year
  Sex: Male

DRUGS (9)
  1. COREG [Suspect]
     Indication: HYPERTENSION
     Dosage: 3.125MG TWICE PER DAY
     Route: 048
     Dates: start: 20060401, end: 20060901
  2. LIPITOR [Concomitant]
  3. ALLOPURINOL [Concomitant]
  4. LISINOPRIL [Concomitant]
  5. NEXIUM [Concomitant]
  6. FLOMAX [Concomitant]
  7. SINGULAIR [Concomitant]
  8. SPIRIVA [Concomitant]
  9. COSOPT [Concomitant]

REACTIONS (2)
  - DRY EYE [None]
  - PSORIASIS [None]
